FAERS Safety Report 22381782 (Version 1)
Quarter: 2023Q2

REPORT INFORMATION
  Report Type: Other
  Country: None (occurrence: US)
  Receive Date: 20230530
  Receipt Date: 20230530
  Transmission Date: 20230721
  Serious: Yes (Other)
  Sender: FDA-Public Use
  Company Number: US-P+L Developments of Newyork Corporation-2142106

PATIENT
  Age: 58 Year
  Sex: Male

DRUGS (1)
  1. NAPROXEN [Suspect]
     Active Substance: NAPROXEN
     Indication: Product used for unknown indication
     Route: 065

REACTIONS (3)
  - Systemic lupus erythematosus [Recovered/Resolved]
  - Toxic epidermal necrolysis [Recovered/Resolved]
  - Fibrillary glomerulonephritis [Recovered/Resolved]
